FAERS Safety Report 9149331 (Version 2)
Quarter: 2013Q1

REPORT INFORMATION
  Report Type: Spontaneous
  Country: CA (occurrence: CA)
  Receive Date: 20130308
  Receipt Date: 20130319
  Transmission Date: 20140127
  Serious: Yes (Other)
  Sender: FDA-Public Use
  Company Number: CA-BRISTOL-MYERS SQUIBB COMPANY-16736720

PATIENT
  Age: 16 Year
  Sex: Female

DRUGS (16)
  1. ORENCIA [Suspect]
     Indication: UVEITIS
     Dosage: 30MAY12,14JUN12
     Route: 042
     Dates: start: 20120514
  2. LEFLUNOMIDE [Concomitant]
  3. CHOLECALCIFEROL [Concomitant]
  4. EYE DROPS [Concomitant]
  5. CYCLOPENTOLATE [Concomitant]
  6. PREDNISOLONE [Concomitant]
  7. FLUOROMETHOLONE [Concomitant]
  8. AZOPT [Concomitant]
  9. COMBIGAN [Concomitant]
  10. TRAMADOL [Concomitant]
  11. LANSOPRAZOLE [Concomitant]
  12. ACETAMINOPHEN [Concomitant]
  13. DOCUSATE [Concomitant]
  14. MORPHINE [Concomitant]
  15. PREDNISONE [Concomitant]
  16. CELECOXIB [Concomitant]

REACTIONS (3)
  - Cataract [Unknown]
  - Eyelid ptosis [Recovered/Resolved]
  - Hypoaesthesia [Recovered/Resolved]
